FAERS Safety Report 6661240-4 (Version None)
Quarter: 2010Q1

REPORT INFORMATION
  Report Type: 
  Country: None (occurrence: None)
  Receive Date: 20100331
  Receipt Date: 20100323
  Transmission Date: 20100710
  Serious: Yes (Hospitalization)
  Sender: FDA-Public Use
  Company Number: US-ROCHE-693788

PATIENT
  Sex: Male

DRUGS (3)
  1. MYCOPHENOLATE MOFETIL [Suspect]
     Route: 065
     Dates: start: 20070214
  2. BELATACEPT [Suspect]
     Route: 042
     Dates: start: 20070214
  3. PREDNISONE TAB [Suspect]
     Route: 065

REACTIONS (1)
  - GANGRENE [None]
